FAERS Safety Report 8078446-2 (Version None)
Quarter: 2012Q1

REPORT INFORMATION
  Report Type: 
  Country: None (occurrence: None)
  Receive Date: 20120127
  Receipt Date: 20110118
  Transmission Date: 20120608
  Serious: Yes (Other)
  Sender: FDA-Public Use
  Company Number: US-ABBOTT-10P-163-0665201-00

PATIENT
  Sex: Male
  Weight: 68.554 kg

DRUGS (20)
  1. OXYCODONE HCL [Concomitant]
     Indication: PRODUCT USED FOR UNKNOWN INDICATION
     Dosage: 15MG X 3 TABLETS EVERY 3 HOURS
     Route: 048
  2. METHOTREXATE [Concomitant]
     Indication: PRODUCT USED FOR UNKNOWN INDICATION
     Dosage: 2.5MG X 8 TABLETS PER WEEK
     Route: 048
  3. ASPIRIN [Concomitant]
     Indication: PRODUCT USED FOR UNKNOWN INDICATION
     Route: 048
  4. FLUOXETINE HYDROCHLORIDE [Concomitant]
     Dosage: 20MG X 1 CAPSULE DAILY
     Route: 048
  5. TAMSULOSIN HCL [Concomitant]
     Indication: PRODUCT USED FOR UNKNOWN INDICATION
     Dosage: 0.4MG X 2 CAPSULES AT BEDTIME
     Route: 048
  6. ALENDRONATE SODIUM [Concomitant]
     Indication: PRODUCT USED FOR UNKNOWN INDICATION
     Dosage: 70MG X 1 TABLET ONCE A WEEK, 30-60 MINUTES PRIOR TO BREAKFAST ON AN EMPTY STOMACH.
     Route: 048
  7. GABAPENTIN [Concomitant]
     Indication: PRODUCT USED FOR UNKNOWN INDICATION
     Dosage: 300MG X 1 CAPSULE 3 TIMES DAILY
     Route: 048
  8. RESTASIS [Concomitant]
     Indication: PRODUCT USED FOR UNKNOWN INDICATION
     Dosage: 0.05% OPHTHALMIC EMULSION; RPT
  9. TIMOLOL MALEATE [Concomitant]
     Indication: PRODUCT USED FOR UNKNOWN INDICATION
     Dosage: MALEATE SOLUTION; RPT
  10. POTASSIUM CHLORIDE CRYS CR [Concomitant]
     Indication: PRODUCT USED FOR UNKNOWN INDICATION
     Dosage: 1 TABLET DAILY
     Route: 048
  11. OXYCONTIN [Concomitant]
     Indication: PRODUCT USED FOR UNKNOWN INDICATION
     Dosage: EX RELEASE 12 HOUR; 1 Q AM
     Route: 048
  12. OXYCONTIN [Concomitant]
     Dosage: EXTENDED RELEASE 12 HOUR: 1 TABLET EVERY EVENING MDD;1
     Route: 048
  13. MINOCYCLINE HCL [Concomitant]
     Indication: PRODUCT USED FOR UNKNOWN INDICATION
     Dosage: 100MG X 1 CAPSULE EVERY EVENING
     Route: 048
  14. ONDANSETRON [Concomitant]
     Indication: PRODUCT USED FOR UNKNOWN INDICATION
     Dosage: 8MG DISPERSABLE TABLET X EVERY 8 HOURS
     Route: 048
  15. LORAZEPAM [Concomitant]
     Indication: PRODUCT USED FOR UNKNOWN INDICATION
     Dosage: 0.5MG  X 1 TABLET EVERY 4-6 HOURS AS REQUIRED
     Route: 048
  16. FLUOXETINE HYDROCHLORIDE [Concomitant]
     Indication: PRODUCT USED FOR UNKNOWN INDICATION
     Dosage: 10MG X 2 TABLETS DAILY
     Route: 048
  17. NEULASTA [Concomitant]
     Indication: PRODUCT USED FOR UNKNOWN INDICATION
     Dosage: 6MG/0.6ML SOLUTION AS DIRECTED
     Route: 058
  18. ALLOPURINOL [Concomitant]
     Indication: PRODUCT USED FOR UNKNOWN INDICATION
     Dosage: 100MG X 1 TABLET DAILY AS DIRECTED
     Route: 048
  19. HUMIRA [Suspect]
     Indication: RHEUMATOID ARTHRITIS
     Route: 058
     Dates: start: 20091101, end: 20100701
  20. OXYCONTIN [Concomitant]
     Dosage: 40MG EXTENDED RELEASE 12 HOUR X 1 TABLET EVERY 12 HOURS
     Route: 048

REACTIONS (1)
  - NON-HODGKIN'S LYMPHOMA RECURRENT [None]
